FAERS Safety Report 5649010-7 (Version None)
Quarter: 2008Q1

REPORT INFORMATION
  Report Type: 
  Country: None (occurrence: None)
  Receive Date: 20080303
  Receipt Date: 20080303
  Transmission Date: 20080703
  Serious: No
  Sender: FDA-Public Use
  Company Number: None

PATIENT
  Age: 15 Year
  Sex: Female
  Weight: 61.2356 kg

DRUGS (1)
  1. PREDNISONE [Suspect]
     Indication: POST PROCEDURAL SWELLING
     Dates: start: 20070613, end: 20070713

REACTIONS (4)
  - PETIT MAL EPILEPSY [None]
  - POST PROCEDURAL COMPLICATION [None]
  - STARING [None]
  - TREMOR [None]
